FAERS Safety Report 6498182-3 (Version None)
Quarter: 2009Q4

REPORT INFORMATION
  Report Type: 
  Country: None (occurrence: None)
  Receive Date: 20091215
  Receipt Date: 20091203
  Transmission Date: 20100525
  Serious: Yes (Other)
  Sender: FDA-Public Use
  Company Number: BR-ELI_LILLY_AND_COMPANY-BR200912001092

PATIENT
  Sex: Male
  Weight: 55 kg

DRUGS (3)
  1. CYMBALTA [Suspect]
     Indication: FIBROMYALGIA
     Dosage: 60 MG, UNKNOWN
     Route: 065
  2. GABAPENTINA [Concomitant]
     Dosage: 300 MG, 2/D
     Route: 065
  3. LORAZEPAM [Concomitant]
     Dosage: 10 MG, DAILY (1/D)
     Route: 065

REACTIONS (5)
  - FALL [None]
  - HEADACHE [None]
  - LOSS OF CONSCIOUSNESS [None]
  - PARAESTHESIA [None]
  - SYNCOPE [None]
